FAERS Safety Report 15613919 (Version 4)
Quarter: 2019Q2

REPORT INFORMATION
  Report Type: Report from Study
  Country: US (occurrence: US)
  Receive Date: 20181113
  Receipt Date: 20190417
  Transmission Date: 20190711
  Serious: Yes (Hospitalization)
  Sender: FDA-Public Use
  Company Number: US-ACTELION-A-US2018-181740

PATIENT
  Sex: Male

DRUGS (2)
  1. BOSENTAN TABLET 32 MG PED US [Suspect]
     Active Substance: BOSENTAN
     Dosage: 32 MG, Q12HRS
     Route: 048
     Dates: start: 20190125
  2. BOSENTAN TABLET 32 MG PED US [Suspect]
     Active Substance: BOSENTAN
     Indication: PULMONARY ARTERIAL HYPERTENSION
     Dosage: 10 MG, BID
     Route: 048
     Dates: start: 20180404

REACTIONS (1)
  - Dyspnoea [Recovering/Resolving]
